FAERS Safety Report 17840387 (Version 1)
Quarter: 2020Q2

REPORT INFORMATION
  Report Type: Spontaneous
  Country: CN (occurrence: CN)
  Receive Date: 20200529
  Receipt Date: 20200529
  Transmission Date: 20200714
  Serious: Yes (Hospitalization)
  Sender: FDA-Public Use
  Company Number: CN-BAXTER-2020BAX011009

PATIENT
  Age: 46 Year
  Sex: Female
  Weight: 46.7 kg

DRUGS (15)
  1. 0.9% SODIUM CHLORIDE INJECTION [Suspect]
     Active Substance: SODIUM CHLORIDE
     Dosage: 1ST TO 4TH CYCLE; EPIRUBICIN HYDROCHLORIDE + 0. 9% NS
     Route: 041
  2. 0.9% SODIUM CHLORIDE INJECTION [Suspect]
     Active Substance: SODIUM CHLORIDE
     Dosage: 5TH CYCLE; EPIRUBICIN HYDROCHLORIDE 120 MG + 0. 9% NS 40 ML
     Route: 041
     Dates: start: 20200511, end: 20200511
  3. AOMINGRUN [Suspect]
     Active Substance: DOCETAXEL
     Indication: METASTASES TO LUNG
  4. ENDOXAN [Suspect]
     Active Substance: CYCLOPHOSPHAMIDE
     Indication: BREAST CANCER FEMALE
     Dosage: 1ST TO 4TH CYCLE, CYCLOPHOSPHAMIDE + 0. 9% NS
     Route: 041
  5. ENDOXAN [Suspect]
     Active Substance: CYCLOPHOSPHAMIDE
     Indication: DISEASE RECURRENCE
     Dosage: 5TH CYCLE; CYCLOPHOSPHAMIDE 0.7 G + 0. 9% NS 100 ML
     Route: 041
     Dates: start: 20200511, end: 20200511
  6. AOMINGRUN [Suspect]
     Active Substance: DOCETAXEL
     Indication: BREAST CANCER FEMALE
     Dosage: 1ST TO 4TH CYCLE; DOCETAXEL + 0. 9% NS
     Route: 041
  7. AOMINGRUN [Suspect]
     Active Substance: DOCETAXEL
     Indication: DISEASE RECURRENCE
     Dosage: 5TH CYCLE; DOCETAXEL 110 MG + 0. 9% NS 200 ML
     Route: 041
     Dates: start: 20200511, end: 20200511
  8. EPIRUBICIN HYDROCHLORIDE. [Suspect]
     Active Substance: EPIRUBICIN HYDROCHLORIDE
     Indication: DISEASE RECURRENCE
     Dosage: 5TH CYCLE; EPIRUBICIN HYDROCHLORIDE 120 MG + 0. 9% NS 40 ML
     Route: 041
     Dates: start: 20200511, end: 20200511
  9. 0.9% SODIUM CHLORIDE INJECTION [Suspect]
     Active Substance: SODIUM CHLORIDE
     Indication: MEDICATION DILUTION
     Dosage: 1ST TO 4TH CYCLE; CYCLOPHOSPHAMIDE + 0. 9% NS
     Route: 041
  10. 0.9% SODIUM CHLORIDE INJECTION [Suspect]
     Active Substance: SODIUM CHLORIDE
     Dosage: 1ST TO 4TH CYCLE; DOCETAXEL + 0. 9% NS
     Route: 041
  11. 0.9% SODIUM CHLORIDE INJECTION [Suspect]
     Active Substance: SODIUM CHLORIDE
     Dosage: 5TH CYCLE; DOCETAXEL 110 MG + 0. 9% NS 200 ML
     Route: 041
     Dates: start: 20200511, end: 20200511
  12. EPIRUBICIN HYDROCHLORIDE. [Suspect]
     Active Substance: EPIRUBICIN HYDROCHLORIDE
     Indication: BREAST CANCER FEMALE
     Dosage: 1ST TO 4TH CYCLE; EPIRUBICIN HYDROCHLORIDE + 0. 9% NS
     Route: 041
  13. ENDOXAN [Suspect]
     Active Substance: CYCLOPHOSPHAMIDE
     Indication: METASTASES TO LUNG
  14. 0.9% SODIUM CHLORIDE INJECTION [Suspect]
     Active Substance: SODIUM CHLORIDE
     Dosage: 5TH CYCLE; CYCLOPHOSPHAMIDE 0.7 G + 0. 9% NS 100 ML
     Route: 041
     Dates: start: 20200511, end: 20200511
  15. EPIRUBICIN HYDROCHLORIDE. [Suspect]
     Active Substance: EPIRUBICIN HYDROCHLORIDE
     Indication: METASTASES TO LUNG

REACTIONS (1)
  - Leukopenia [Recovering/Resolving]

NARRATIVE: CASE EVENT DATE: 20200515
